FAERS Safety Report 7111608-7 (Version None)
Quarter: 2010Q4

REPORT INFORMATION
  Report Type: 
  Country: None (occurrence: None)
  Receive Date: 20101118
  Receipt Date: 20100305
  Transmission Date: 20110411
  Serious: No
  Sender: FDA-Public Use
  Company Number: US-TEVA-225538USA

PATIENT
  Sex: Male
  Weight: 77.18 kg

DRUGS (1)
  1. ALBUTEROL SULFATE AUTOHALER [Suspect]
     Indication: ASTHMA
     Route: 055
     Dates: start: 20100214

REACTIONS (3)
  - GASTROENTERITIS VIRAL [None]
  - NAUSEA [None]
  - VOMITING [None]
